FAERS Safety Report 7683624-8 (Version None)
Quarter: 2011Q3

REPORT INFORMATION
  Report Type: 
  Country: None (occurrence: None)
  Receive Date: 20110811
  Receipt Date: 20110728
  Transmission Date: 20111222
  Serious: Yes (Hospitalization, Other)
  Sender: FDA-Public Use
  Company Number: 11-028

PATIENT
  Sex: Male

DRUGS (1)
  1. ALLERGENIC EXTRACTS [Suspect]
     Indication: IMMUNISATION
     Dosage: SEE IMAGE
     Dates: start: 20110726

REACTIONS (2)
  - CHEST PAIN [None]
  - PAIN IN EXTREMITY [None]
